FAERS Safety Report 15227578 (Version 1)
Quarter: 2018Q3

REPORT INFORMATION
  Report Type: Spontaneous
  Country: NL (occurrence: NL)
  Receive Date: 20180801
  Receipt Date: 20180801
  Transmission Date: 20181010
  Serious: Yes (Other)
  Sender: FDA-Public Use
  Company Number: NL-MYLANLABS-2018M1056411

PATIENT
  Sex: Male
  Weight: 85 kg

DRUGS (1)
  1. BISOPROLOL [Suspect]
     Active Substance: BISOPROLOL
     Indication: ATRIAL FIBRILLATION
     Dosage: 1.25 MG, QD, 1 KEER PER DAG 1
     Dates: start: 201712

REACTIONS (2)
  - Drug ineffective [Recovered/Resolved]
  - Therapeutic response unexpected [Recovered/Resolved]
